FAERS Safety Report 9647036 (Version 1)
Quarter: 2013Q4

REPORT INFORMATION
  Report Type: Spontaneous
  Country: US (occurrence: US)
  Receive Date: 20131027
  Receipt Date: 20131027
  Transmission Date: 20140711
  Serious: No
  Sender: FDA-Public Use
  Company Number: US-PURDUE-USA-2013-0102833

PATIENT
  Sex: Male

DRUGS (3)
  1. OXYCONTIN (NDA 22-272) [Suspect]
     Indication: CANCER PAIN
     Dosage: 80 MG, Q12H
     Route: 048
     Dates: start: 201208
  2. OXYCODONE HYDROCHLORIDE (SIMILAR TO NDA 22-272) [Suspect]
     Indication: CANCER PAIN
     Dosage: 80 MG, Q12H
     Route: 048
  3. OXYCODONE HCL IMMEDIATE RELEASE (91-490) [Suspect]
     Indication: CANCER PAIN
     Dosage: 30 MG, DAILY
     Route: 048

REACTIONS (3)
  - Pain [Not Recovered/Not Resolved]
  - Drug ineffective [Not Recovered/Not Resolved]
  - Drug effect decreased [Not Recovered/Not Resolved]
